FAERS Safety Report 13363120 (Version 1)
Quarter: 2017Q1

REPORT INFORMATION
  Report Type: Spontaneous
  Country: US (occurrence: US)
  Receive Date: 20170322
  Receipt Date: 20170322
  Transmission Date: 20170429
  Serious: Yes (Other)
  Sender: FDA-Public Use
  Company Number: None

PATIENT
  Age: 64 Year
  Sex: Female
  Weight: 53.57 kg

DRUGS (1)
  1. GAMMAGARD [Suspect]
     Active Substance: HUMAN IMMUNOGLOBULIN G
     Indication: MULTIPLE SCLEROSIS
     Dosage: 400ML EVERY2WKS
     Route: 042
     Dates: start: 20140516

REACTIONS (1)
  - Hepatitis C [None]

NARRATIVE: CASE EVENT DATE: 20170124
